FAERS Safety Report 17915163 (Version 1)
Quarter: 2020Q2

REPORT INFORMATION
  Report Type: Spontaneous
  Country: BR (occurrence: BR)
  Receive Date: 20200618
  Receipt Date: 20200618
  Transmission Date: 20200714
  Serious: Yes (Other)
  Sender: FDA-Public Use
  Company Number: BR-BAXTER-2020BAX012257

PATIENT
  Age: 67 Year
  Sex: Female

DRUGS (1)
  1. METRONIFLEX [Suspect]
     Active Substance: METRONIDAZOLE
     Indication: LIVER ABSCESS
     Route: 065

REACTIONS (1)
  - Neurotoxicity [Unknown]
